FAERS Safety Report 13829087 (Version 1)
Quarter: 2017Q3

REPORT INFORMATION
  Report Type: Spontaneous
  Country: US (occurrence: US)
  Receive Date: 20170803
  Receipt Date: 20170803
  Transmission Date: 20171127
  Serious: No
  Sender: FDA-Public Use
  Company Number: US-DRREDDYS-USA/USA/16/0084489

PATIENT
  Age: 58 Year
  Sex: Female

DRUGS (1)
  1. OMEPRAZOLE MAGNESIUM DELAYED RELEASE OTC [Suspect]
     Active Substance: OMEPRAZOLE MAGNESIUM
     Indication: GASTROOESOPHAGEAL REFLUX DISEASE
     Dosage: SEVERAL YEARS AGO
     Route: 048

REACTIONS (4)
  - Product quality issue [Unknown]
  - Gastric disorder [Unknown]
  - Abdominal pain lower [Recovering/Resolving]
  - Medication residue present [Unknown]

NARRATIVE: CASE EVENT DATE: 20161028
